FAERS Safety Report 9713388 (Version 1)
Quarter: 2013Q4

REPORT INFORMATION
  Report Type: Spontaneous
  Country: US (occurrence: None)
  Receive Date: 20131125
  Receipt Date: 20131125
  Transmission Date: 20140711
  Serious: Yes (Hospitalization)
  Sender: FDA-Public Use
  Company Number: None

PATIENT
  Age: 53 Year
  Sex: Male
  Weight: 94.4 kg

DRUGS (7)
  1. EFIENT [Suspect]
     Indication: PERCUTANEOUS CORONARY INTERVENTION
     Route: 048
  2. ASPIRIN [Concomitant]
  3. LIPITOR [Concomitant]
  4. LISINOPRIL [Concomitant]
  5. CITALOPRAM [Concomitant]
  6. METOPROLOL TARTRATE [Concomitant]
  7. HYDRALAZINE [Concomitant]

REACTIONS (7)
  - Asthenia [None]
  - Fatigue [None]
  - Faeces discoloured [None]
  - Melaena [None]
  - Upper gastrointestinal haemorrhage [None]
  - Gastritis [None]
  - Duodenal ulcer [None]
